FAERS Safety Report 15200583 (Version 2)
Quarter: 2018Q3

REPORT INFORMATION
  Report Type: Report from Study
  Country: BR (occurrence: BR)
  Receive Date: 20180726
  Receipt Date: 20180806
  Transmission Date: 20181010
  Serious: Yes (Hospitalization, Other)
  Sender: FDA-Public Use
  Company Number: BR-ROCHE-2159969

PATIENT
  Age: 58 Year
  Sex: Male
  Weight: 65 kg

DRUGS (7)
  1. XOLAIR [Suspect]
     Active Substance: OMALIZUMAB
     Indication: ASTHMA
     Route: 058
     Dates: start: 20141209, end: 201704
  2. PREDNISONE. [Concomitant]
     Active Substance: PREDNISONE
     Indication: ASTHMA
     Dosage: 2 DF, QD
     Route: 048
     Dates: start: 2007
  3. BUSONID [Concomitant]
     Active Substance: BUDESONIDE
     Indication: ASTHMA
     Dosage: 2 DF, QD
     Route: 055
     Dates: start: 2007
  4. AEROLIN [Concomitant]
     Active Substance: ALBUTEROL
     Indication: ASTHMA
     Dosage: 4 DF, QD
     Route: 055
     Dates: start: 2005
  5. MIFLONIDE [Concomitant]
     Active Substance: BUDESONIDE
     Indication: ASTHMA
     Dosage: 2 DF, QD
     Route: 055
     Dates: start: 2005
  6. CILOSTAZOL. [Concomitant]
     Active Substance: CILOSTAZOL
     Indication: PROPHYLAXIS AGAINST GASTROINTESTINAL ULCER
     Dosage: 1 DF, QD
     Route: 048
     Dates: start: 2017
  7. FORASEQ (BRAZIL) [Concomitant]
     Active Substance: BUDESONIDE\FORMOTEROL FUMARATE
     Indication: ASTHMA
     Dosage: UNK UNK, BID
     Route: 055
     Dates: start: 2005

REACTIONS (17)
  - Gait inability [Unknown]
  - Spinal disorder [Not Recovered/Not Resolved]
  - Glaucoma [Not Recovered/Not Resolved]
  - Contusion [Unknown]
  - Pain in extremity [Not Recovered/Not Resolved]
  - Thrombosis [Not Recovered/Not Resolved]
  - Myocardial infarction [Unknown]
  - Sciatica [Not Recovered/Not Resolved]
  - Cataract [Not Recovered/Not Resolved]
  - Bone disorder [Not Recovered/Not Resolved]
  - Nail disorder [Not Recovered/Not Resolved]
  - Tooth disorder [Recovering/Resolving]
  - Back pain [Not Recovered/Not Resolved]
  - Deep vein thrombosis [Unknown]
  - Paraesthesia [Not Recovered/Not Resolved]
  - Hypertension [Recovering/Resolving]
  - Peripheral swelling [Unknown]

NARRATIVE: CASE EVENT DATE: 20141209
